FAERS Safety Report 6121428-8 (Version None)
Quarter: 2009Q1

REPORT INFORMATION
  Report Type: 
  Country: None (occurrence: None)
  Receive Date: 20090317
  Receipt Date: 20090306
  Transmission Date: 20090719
  Serious: Yes (Other)
  Sender: FDA-Public Use
  Company Number: PHHY2009DE09051

PATIENT
  Age: 46 Year
  Sex: Male

DRUGS (2)
  1. DIOVAN [Suspect]
     Indication: HYPERTENSION
     Dosage: UNK
     Route: 048
     Dates: start: 20070101
  2. PRAVASTATIN SODIUM [Concomitant]
     Dosage: UNK
     Route: 048
     Dates: start: 20070101

REACTIONS (5)
  - ERYTHEMA MULTIFORME [None]
  - SCLERODERMA [None]
  - SKIN ATROPHY [None]
  - SKIN FRAGILITY [None]
  - SKIN HAEMORRHAGE [None]
